FAERS Safety Report 22350331 (Version 1)
Quarter: 2023Q2

REPORT INFORMATION
  Report Type: Spontaneous
  Country: US (occurrence: None)
  Receive Date: 20230520
  Receipt Date: 20230520
  Transmission Date: 20230721
  Serious: Yes (Life-Threatening, Hospitalization)
  Sender: FDA-Public Use
  Company Number: None

PATIENT
  Age: 32 Year
  Sex: Female
  Weight: 64.8 kg

DRUGS (1)
  1. AVSOLA [Suspect]
     Active Substance: INFLIXIMAB-AXXQ
     Indication: Colitis ulcerative
     Dates: start: 20230506, end: 20230520

REACTIONS (8)
  - Heart rate increased [None]
  - Dyspnoea [None]
  - Dysphagia [None]
  - Oral disorder [None]
  - Sensory disturbance [None]
  - Tongue disorder [None]
  - Emotional distress [None]
  - Infusion related reaction [None]

NARRATIVE: CASE EVENT DATE: 20230520
